FAERS Safety Report 5657641-3 (Version None)
Quarter: 2008Q1

REPORT INFORMATION
  Report Type: 
  Country: None (occurrence: None)
  Receive Date: 20080310
  Receipt Date: 20080229
  Transmission Date: 20080703
  Serious: Yes (Hospitalization, Other)
  Sender: FDA-Public Use
  Company Number: US-ABBOTT-08P-163-0440549-00

PATIENT
  Age: 24 Year
  Sex: Female

DRUGS (2)
  1. DEPAKOTE [Suspect]
     Indication: ABNORMAL BEHAVIOUR
  2. AUGMENTIN '125' [Suspect]
     Indication: CELLULITIS
     Dates: start: 20080221

REACTIONS (3)
  - ANTICONVULSANT DRUG LEVEL DECREASED [None]
  - CELLULITIS [None]
  - CONVULSION [None]
